FAERS Safety Report 15562133 (Version 2)
Quarter: 2018Q4

REPORT INFORMATION
  Report Type: Report from Study
  Country: US (occurrence: US)
  Receive Date: 20181029
  Receipt Date: 20181123
  Transmission Date: 20190205
  Serious: Yes (Hospitalization)
  Sender: FDA-Public Use
  Company Number: US-PUMA BIOTECHNOLOGY, LTD.-2018US010642

PATIENT

DRUGS (2)
  1. NERLYNX [Suspect]
     Active Substance: NERATINIB
     Dosage: 240 MG, DAILY
     Route: 048
     Dates: start: 20180427, end: 2018
  2. NERLYNX [Suspect]
     Active Substance: NERATINIB
     Indication: BREAST CANCER FEMALE
     Dosage: 160 MG, DAILY
     Route: 048
     Dates: start: 2018, end: 2018

REACTIONS (3)
  - Confusional state [Unknown]
  - Urinary tract infection [Unknown]
  - Asthenia [Unknown]

NARRATIVE: CASE EVENT DATE: 20181019
